FAERS Safety Report 7827553-5 (Version None)
Quarter: 2011Q4

REPORT INFORMATION
  Report Type: 
  Country: None (occurrence: None)
  Receive Date: 20111020
  Receipt Date: 20111018
  Transmission Date: 20120403
  Serious: Yes (Death)
  Sender: FDA-Public Use
  Company Number: PHHY2011JP91756

PATIENT

DRUGS (1)
  1. EXELON [Suspect]
     Route: 062

REACTIONS (1)
  - NEOPLASM MALIGNANT [None]
